FAERS Safety Report 8403671 (Version 4)
Quarter: 2012Q4

REPORT INFORMATION
  Report Type: Spontaneous
  Country: US (occurrence: None)
  Receive Date: 20120202
  Receipt Date: 20120822
  Transmission Date: 20130627
  Serious: Yes (Other)
  Sender: FDA-Public Use
  Company Number: AUR-APL-2012-00668

PATIENT
  Age: 35 Year
  Sex: Male
  Weight: 102.06 kg

DRUGS (4)
  1. ZOLPIDEM [Suspect]
     Indication: SLEEP DISORDER
     Dosage: (1.5 MG, 1 D), ORAL
     Route: 048
     Dates: start: 20120122
  2. SUBOXONE (SUBOXONE /01687501/) [Concomitant]
  3. REMERON [Concomitant]
  4. ZOMIG [Concomitant]

REACTIONS (10)
  - Drug ineffective [None]
  - Product quality issue [None]
  - Insomnia [None]
  - Wrong technique in drug usage process [None]
  - Tablet physical issue [None]
  - Product taste abnormal [None]
  - Treatment noncompliance [None]
  - Incorrect dose administered [None]
  - Anxiety [None]
  - Product substitution issue [None]
